FAERS Safety Report 7561536-8 (Version None)
Quarter: 2011Q2

REPORT INFORMATION
  Report Type: 
  Country: None (occurrence: None)
  Receive Date: 20110621
  Receipt Date: 20100910
  Transmission Date: 20111010
  Serious: No
  Sender: FDA-Public Use
  Company Number: US-ASTRAZENECA-2010SE42733

PATIENT
  Age: 72 Year
  Sex: Female

DRUGS (3)
  1. PULMICORT FLEXHALER [Suspect]
     Dosage: TWO PUFFS TWICE A DAY
     Route: 055
     Dates: start: 20100301
  2. CYMBALTA [Concomitant]
  3. PRIMARIN [Concomitant]

REACTIONS (2)
  - DYSPNOEA EXERTIONAL [None]
  - DEVICE MISUSE [None]
